FAERS Safety Report 19373041 (Version 1)
Quarter: 2021Q2

REPORT INFORMATION
  Report Type: Spontaneous
  Country: LB (occurrence: LB)
  Receive Date: 20210604
  Receipt Date: 20210604
  Transmission Date: 20210717
  Serious: Yes (Other)
  Sender: FDA-Public Use
  Company Number: LB-ASTRAZENECA-2021A481734

PATIENT
  Age: 67 Year
  Sex: Female

DRUGS (2)
  1. TAGRISSO [Suspect]
     Active Substance: OSIMERTINIB
     Indication: EGFR GENE MUTATION
     Route: 048
     Dates: start: 202011
  2. TAGRISSO [Suspect]
     Active Substance: OSIMERTINIB
     Indication: EGFR GENE MUTATION
     Dosage: STOPPING THE MEDICATION FOR ONE DAY
     Route: 048

REACTIONS (3)
  - Bone disorder [Unknown]
  - Diarrhoea [Unknown]
  - Metastasis [Unknown]
